FAERS Safety Report 22121609 (Version 1)
Quarter: 2023Q1

REPORT INFORMATION
  Report Type: Report from Study
  Country: US (occurrence: US)
  Receive Date: 20230321
  Receipt Date: 20230321
  Transmission Date: 20230418
  Serious: Yes (Death)
  Sender: FDA-Public Use
  Company Number: US-Amarin Pharma  Inc-2023AMR000100

PATIENT
  Sex: Male

DRUGS (1)
  1. VASCEPA [Suspect]
     Active Substance: ICOSAPENT ETHYL
     Indication: Chronic left ventricular failure

REACTIONS (2)
  - Death [Fatal]
  - Incorrect dose administered [Unknown]
